FAERS Safety Report 7651717-7 (Version None)
Quarter: 2011Q3

REPORT INFORMATION
  Report Type: 
  Country: None (occurrence: None)
  Receive Date: 20110802
  Receipt Date: 20110721
  Transmission Date: 20111222
  Serious: Yes (Hospitalization)
  Sender: FDA-Public Use
  Company Number: DE-GENENTECH-322188

PATIENT
  Sex: Male

DRUGS (24)
  1. PREDNISONE [Suspect]
     Dosage: 40 MG/M2, UNK
     Route: 042
     Dates: start: 20110316
  2. DOXORUBICIN HCL [Suspect]
     Dosage: 35 MG/M2, UNK
     Route: 042
     Dates: start: 20110316
  3. CYCLOPHOSPHAMIDE [Suspect]
     Indication: HODGKIN'S DISEASE
     Dosage: 1250 MG/M2, UNK
     Route: 042
     Dates: start: 20110224
  4. PANTOPRAZOLE [Concomitant]
     Dosage: UNK
  5. ENOXAPARIN SODIUM [Concomitant]
     Indication: PRODUCT USED FOR UNKNOWN INDICATION
     Dosage: UNK
  6. VINCRISTINE [Suspect]
     Dosage: 1.4 MG/M2, UNK
     Route: 042
     Dates: start: 20110316
  7. ETOPOSIDE [Suspect]
     Dosage: 200 MG/M2, UNK
     Route: 042
  8. BLEOMYCIN [Suspect]
     Dosage: 10 MG/M2, UNK
     Route: 042
     Dates: start: 20110316
  9. PROCARBAZINE HYDROCHLORIDE [Suspect]
     Indication: HODGKIN'S DISEASE
     Dosage: 100 MG/M2, UNK
     Route: 042
     Dates: start: 20110224
  10. PANTOPRAZOLE [Concomitant]
     Indication: PRODUCT USED FOR UNKNOWN INDICATION
     Dosage: UNK
     Dates: start: 20110303, end: 20110309
  11. ACYCLOVIR [Concomitant]
     Indication: PRODUCT USED FOR UNKNOWN INDICATION
     Dosage: 400 MG, TID
  12. PROCARBAZINE HYDROCHLORIDE [Suspect]
     Dosage: 100 MG/M2, UNK
     Route: 042
     Dates: start: 20110316
  13. VINCRISTINE [Suspect]
     Indication: HODGKIN'S DISEASE
     Dosage: 1.4 MG/M2, UNK
     Route: 042
     Dates: start: 20110224
  14. CYCLOPHOSPHAMIDE [Suspect]
     Dosage: 1250 MG/M2, UNK
     Route: 042
     Dates: start: 20110316
  15. COTRIM DS [Concomitant]
     Dosage: 960 MG, 3/WEEK
  16. CIPROFLAXACIN [Concomitant]
     Indication: PRODUCT USED FOR UNKNOWN INDICATION
     Dosage: 1 DF, QAM
     Dates: start: 20110303, end: 20110309
  17. CIPROFLAXACIN [Concomitant]
     Dosage: 500 MG, BID
     Dates: start: 20110711, end: 20110719
  18. COTRIM DS [Concomitant]
     Indication: PRODUCT USED FOR UNKNOWN INDICATION
     Dosage: 960 MG, Q3D
     Dates: start: 20110711, end: 20110719
  19. BLEOMYCIN [Suspect]
     Indication: HODGKIN'S DISEASE
     Dosage: 10 MG/M2, UNK
     Route: 042
     Dates: start: 20110224
  20. DOXORUBICIN HCL [Suspect]
     Indication: HODGKIN'S DISEASE
     Dosage: 35 MG/M2, UNK
     Route: 042
     Dates: start: 20110224
  21. PREDNISONE [Suspect]
     Indication: HODGKIN'S DISEASE
     Dosage: 40 MG/M2, UNK
     Route: 042
     Dates: start: 20110224
  22. RITUXIMAB [Suspect]
     Indication: HODGKIN'S DISEASE
     Dosage: 375 MG/M2, UNK
     Route: 042
     Dates: start: 20110316
  23. ETOPOSIDE [Suspect]
     Indication: HODGKIN'S DISEASE
     Dosage: 200 MG/M2, UNK
     Route: 042
     Dates: start: 20110224
  24. FOLSAURE [Concomitant]
     Indication: PRODUCT USED FOR UNKNOWN INDICATION
     Dosage: UNK

REACTIONS (1)
  - THROMBOPHLEBITIS [None]
